FAERS Safety Report 5390435-5 (Version None)
Quarter: 2007Q3

REPORT INFORMATION
  Report Type: 
  Country: None (occurrence: None)
  Receive Date: 20070718
  Receipt Date: 20070512
  Transmission Date: 20080115
  Serious: No
  Sender: FDA-Public Use
  Company Number: US-KINGPHARMUSA00001-K200700594

PATIENT

DRUGS (1)
  1. LEVOXYL [Suspect]
     Dosage: 50 MCG, SINGLE
     Route: 048

REACTIONS (1)
  - ORAL DISCOMFORT [None]
